FAERS Safety Report 16238422 (Version 1)
Quarter: 2019Q2

REPORT INFORMATION
  Report Type: Spontaneous
  Country: US (occurrence: US)
  Receive Date: 20190425
  Receipt Date: 20190425
  Transmission Date: 20190711
  Serious: Yes (Death)
  Sender: FDA-Public Use
  Company Number: US-ARRAY-2019-05467

PATIENT

DRUGS (2)
  1. BRAFTOVI [Suspect]
     Active Substance: ENCORAFENIB
     Indication: COLON CANCER
     Dosage: UNK
     Dates: end: 20190313
  2. MEKTOVI [Suspect]
     Active Substance: BINIMETINIB
     Indication: COLON CANCER
     Dosage: UNK
     Dates: end: 20190313

REACTIONS (3)
  - Product use in unapproved indication [Recovered/Resolved]
  - Death [Fatal]
  - Blood test abnormal [Unknown]

NARRATIVE: CASE EVENT DATE: 2019
